FAERS Safety Report 16443241 (Version 2)
Quarter: 2019Q3

REPORT INFORMATION
  Report Type: Spontaneous
  Country: ES (occurrence: ES)
  Receive Date: 20190618
  Receipt Date: 20190826
  Transmission Date: 20191004
  Serious: Yes (Other)
  Sender: FDA-Public Use
  Company Number: ES-AUROBINDO-AUR-APL-2019-033985

PATIENT

DRUGS (3)
  1. REUTERI [Concomitant]
     Indication: INFANTILE COLIC
     Dosage: 5 GTT DROPS, ONCE A DAY
     Route: 048
     Dates: start: 20190408
  2. DELTIUS [Concomitant]
     Active Substance: CHOLECALCIFEROL
     Indication: PROPHYLAXIS
     Dosage: 2 GTT DROPS, ONCE A DAY
     Route: 048
     Dates: start: 20190328
  3. OMEPRAZOLE. [Suspect]
     Active Substance: OMEPRAZOLE
     Indication: INFANTILE SPITTING UP
     Dosage: 2MG/ML
     Route: 048
     Dates: start: 20190424, end: 20190529

REACTIONS (2)
  - Product formulation issue [Recovered/Resolved]
  - Hypertrichosis [Recovering/Resolving]

NARRATIVE: CASE EVENT DATE: 20190424
